FAERS Safety Report 10912693 (Version 1)
Quarter: 2015Q1

REPORT INFORMATION
  Report Type: Spontaneous
  Country: US (occurrence: None)
  Receive Date: 20150310
  Receipt Date: 20150310
  Transmission Date: 20150721
  Serious: Yes (Hospitalization)
  Sender: FDA-Public Use
  Company Number: CIO15012456

PATIENT
  Age: 20 Year
  Sex: Male

DRUGS (5)
  1. VICKS NYQUIL [Suspect]
     Active Substance: ACETAMINOPHEN\DEXTROMETHORPHAN HYDROBROMIDE\DOXYLAMINE SUCCINATE
     Dosage: LARGE AMOUNTS
     Route: 048
  2. VICKS DAYQUIL [Suspect]
     Active Substance: DEXTROMETHORPHAN HYDROBROMIDE\GUAIFENESIN
     Dosage: LARGE AMOUNTS
     Route: 048
  3. SIMPLY SLEEP [Suspect]
     Active Substance: DIPHENHYDRAMINE HYDROCHLORIDE
     Dosage: LARGE AMOUNTS
     Route: 048
  4. VICKS DAYQUIL [Suspect]
     Active Substance: DEXTROMETHORPHAN HYDROBROMIDE\GUAIFENESIN
  5. VICKS DAYQUIL [Suspect]
     Active Substance: DEXTROMETHORPHAN HYDROBROMIDE\GUAIFENESIN

REACTIONS (15)
  - Lethargy [None]
  - Flushing [None]
  - Urinary incontinence [None]
  - Confusional state [None]
  - Blood glucose decreased [None]
  - Mydriasis [None]
  - Delirium [None]
  - Sinus tachycardia [None]
  - Electrocardiogram QT prolonged [None]
  - Labelled drug-drug interaction medication error [None]
  - Mental status changes [None]
  - Hypertension [None]
  - Dysarthria [None]
  - Toxicity to various agents [None]
  - Dyskinesia [None]
